FAERS Safety Report 5043025-8 (Version None)
Quarter: 2006Q2

REPORT INFORMATION
  Report Type: 
  Country: None (occurrence: None)
  Receive Date: 20060628
  Receipt Date: 20060627
  Transmission Date: 20061013
  Serious: Yes (Other)
  Sender: FDA-Public Use
  Company Number: 2006S1000028

PATIENT
  Age: 21 Day
  Sex: Female

DRUGS (5)
  1. INOMAX [Suspect]
     Indication: LUNG DISORDER
     Dosage: 5 PPM; INH_GAS; INH; CONT; INH
     Route: 055
     Dates: start: 20060109, end: 20060130
  2. INOMAX [Suspect]
     Indication: PROPHYLAXIS
     Dosage: 5 PPM; INH_GAS; INH; CONT; INH
     Route: 055
     Dates: start: 20060109, end: 20060130
  3. THEOPHYLLINE [Concomitant]
  4. LASIX [Concomitant]
  5. TRIMETHOPRIM [Concomitant]

REACTIONS (4)
  - ANAEMIA NEONATAL [None]
  - INFANTILE APNOEIC ATTACK [None]
  - PATENT DUCTUS ARTERIOSUS [None]
  - PULMONARY OEDEMA NEONATAL [None]
